FAERS Safety Report 14208472 (Version 38)
Quarter: 2020Q1

REPORT INFORMATION
  Report Type: Spontaneous
  Country: FR (occurrence: FR)
  Receive Date: 20171121
  Receipt Date: 20200213
  Transmission Date: 20200409
  Serious: Yes (Death, Life-Threatening, Hospitalization, Other)
  Sender: FDA-Public Use
  Company Number: FR-PFIZER INC-2017488204

PATIENT
  Age: 80 Year
  Sex: Female
  Weight: 50 kg

DRUGS (31)
  1. FUROSEMIDE ARROW [Suspect]
     Active Substance: FUROSEMIDE
     Dosage: 45 MG, QD
     Route: 042
     Dates: start: 20170911, end: 20170911
  2. CALCIDOSE [CALCIUM CARBONATE;COLECALCIFEROL] [Suspect]
     Active Substance: CALCIUM CARBONATE\CHOLECALCIFEROL
     Dosage: 1 DF, DAILY(1 DF=1 SACHET)
     Route: 040
     Dates: start: 20170911, end: 20170911
  3. PARACETAMOL [Suspect]
     Active Substance: ACETAMINOPHEN
     Indication: PAIN
     Dosage: 500 MILLIGRAM, QD
     Route: 048
     Dates: start: 20170911, end: 20170911
  4. PARACETAMOL [Suspect]
     Active Substance: ACETAMINOPHEN
     Dosage: 500 MILLIGRAM, BID
     Route: 040
     Dates: start: 20170911, end: 20170911
  5. CORDARONE [Suspect]
     Active Substance: AMIODARONE HYDROCHLORIDE
     Dosage: 200 MILLIGRAM, BID
     Route: 040
     Dates: start: 20170911, end: 20170911
  6. LEVOTHYROX [Suspect]
     Active Substance: LEVOTHYROXINE
     Indication: HYPOTHYROIDISM
     Dosage: 1 DF, QD(1 GRINDED TABLET)
     Route: 048
  7. ELIQUIS [Suspect]
     Active Substance: APIXABAN
     Dosage: 2.5 MG, 1X/DAY
     Route: 040
     Dates: start: 20170911, end: 20170911
  8. PARACETAMOL [Suspect]
     Active Substance: ACETAMINOPHEN
     Indication: ANALGESIC THERAPY
     Dosage: 500 MILLIGRAM, BID
     Route: 040
     Dates: start: 20170911, end: 20170911
  9. FUROSEMIDE ARROW [Suspect]
     Active Substance: FUROSEMIDE
     Dosage: 20 MG, DAILY
     Route: 040
     Dates: start: 20170911, end: 20170911
  10. CALCIDOSE [CALCIUM CARBONATE;COLECALCIFEROL] [Suspect]
     Active Substance: CALCIUM CARBONATE\CHOLECALCIFEROL
     Indication: OSTEOPOROSIS PROPHYLAXIS
     Dosage: 1 DF, QD (1 DF=1 SACHET )
     Route: 048
  11. PREDNISONE ARROW [Suspect]
     Active Substance: PREDNISONE
     Dosage: 45 MG, QD
     Route: 040
     Dates: start: 20170911, end: 20170911
  12. METHOTREXATE. [Concomitant]
     Active Substance: METHOTREXATE
     Dosage: 0.3 MG/KG, QWK (IN COMBINATION WITH THREE CYCLES OF IMMUNOGLOBULINS)
     Route: 065
     Dates: start: 20170911
  13. ARIPIPRAZOLE. [Concomitant]
     Active Substance: ARIPIPRAZOLE
     Dosage: UNK
     Route: 065
  14. CORDARONE [Suspect]
     Active Substance: AMIODARONE HYDROCHLORIDE
     Dosage: 1 DF, DAILY (SCORED TABLET)
     Route: 040
     Dates: start: 20170911, end: 20170911
  15. PARACETAMOL [Suspect]
     Active Substance: ACETAMINOPHEN
     Dosage: 2 DF, 1X/DAY (1 DF=500MG CAPSULE)
     Route: 040
     Dates: start: 20170911, end: 20170911
  16. PREDNISONE ARROW [Suspect]
     Active Substance: PREDNISONE
     Indication: DERMATOMYOSITIS
     Dosage: 1 DF, QD
     Route: 048
     Dates: start: 20170911, end: 20170911
  17. PREDNISONE ARROW [Suspect]
     Active Substance: PREDNISONE
     Dosage: 45 MG, INTERVAL 1 DAY
     Route: 040
     Dates: start: 20170911, end: 20170911
  18. CALCIDOSE [CALCIUM CARBONATE;COLECALCIFEROL] [Suspect]
     Active Substance: CALCIUM CARBONATE\CHOLECALCIFEROL
     Dosage: 1 DF, DAILY
     Route: 040
     Dates: start: 20170911, end: 20170911
  19. LEVOTHYROX [Suspect]
     Active Substance: LEVOTHYROXINE
     Dosage: 175 MICROGRAM, QD (1 GRINDED TABLET)
     Route: 040
     Dates: start: 20170911, end: 20170911
  20. ELIQUIS [Suspect]
     Active Substance: APIXABAN
     Indication: THROMBOSIS PROPHYLAXIS
     Dosage: 1 DOSAGE FORM, QD
     Route: 048
     Dates: start: 20170911, end: 20170911
  21. ELIQUIS [Suspect]
     Active Substance: APIXABAN
     Indication: THROMBOSIS PROPHYLAXIS
     Dosage: 1 DOSAGE FORM = 1 T, INTERVAL 1 DAY
     Route: 040
     Dates: start: 20170911, end: 20170911
  22. CORDARONE [Suspect]
     Active Substance: AMIODARONE HYDROCHLORIDE
     Indication: ARRHYTHMIA
     Dosage: 1 DF, QD (BREAKABLE TABLET, 1 GRINDED TABLET   )
     Route: 048
  23. LASIX [Suspect]
     Active Substance: FUROSEMIDE
     Indication: CARDIAC FAILURE
     Dosage: 20 MG, QD (GRINDED TABLET)
     Route: 048
  24. CALCIUM CARBONATE W/COLECALCIFEROL [Suspect]
     Active Substance: CALCIUM CARBONATE\CHOLECALCIFEROL
     Indication: OSTEOPOROSIS PROPHYLAXIS
     Dosage: 1 DF, QD
     Route: 040
     Dates: start: 20170911, end: 20170911
  25. METHOTREXATE. [Concomitant]
     Active Substance: METHOTREXATE
     Indication: NEOPLASM
     Dosage: 0.3 MG/KG, QWK (IN COMBINATION WITH THREE CYCLES OF IMMUNOGLOBULINS)
     Route: 065
     Dates: start: 20170801, end: 20170801
  26. CORDARONE [Suspect]
     Active Substance: AMIODARONE HYDROCHLORIDE
     Dosage: 1 DF= 1 T, INTERVAL 1 DAY) DF, QD; IV BOLUS
     Route: 040
     Dates: start: 20170911, end: 20170911
  27. LASIX [Suspect]
     Active Substance: FUROSEMIDE
     Indication: CARDIAC FAILURE
     Dosage: 20 MG, QD (1 GRINDED TABLET)
     Route: 042
     Dates: start: 20170911, end: 20170911
  28. FUROSEMIDE ARROW [Suspect]
     Active Substance: FUROSEMIDE
     Indication: CARDIAC FAILURE
     Dosage: 20 MG, 1X/DAY
     Route: 041
     Dates: start: 20170911, end: 20170911
  29. FUROSEMIDE ARROW [Suspect]
     Active Substance: FUROSEMIDE
     Dosage: 1 DF, QD
     Route: 048
  30. DIGOXINE NATIVELLE [Suspect]
     Active Substance: DIGOXIN
     Indication: ARRHYTHMIA
     Dosage: 1 DF, QD (1 GRINDED TABLET)
     Route: 040
     Dates: start: 20170911, end: 20170911
  31. DIGOXINE NATIVELLE [Suspect]
     Active Substance: DIGOXIN
     Indication: ARRHYTHMIA

REACTIONS (4)
  - Incorrect route of product administration [Fatal]
  - Off label use [Fatal]
  - Medication error [Unknown]
  - Cardio-respiratory arrest [Fatal]

NARRATIVE: CASE EVENT DATE: 20170911
